FAERS Safety Report 6450588-4 (Version None)
Quarter: 2009Q4

REPORT INFORMATION
  Report Type: 
  Country: None (occurrence: None)
  Receive Date: 20091116
  Receipt Date: 20091007
  Transmission Date: 20100525
  Serious: Yes (Other)
  Sender: FDA-Public Use
  Company Number: WAES 0907USA00053

PATIENT
  Age: 40 Year
  Sex: Male
  Weight: 85.2762 kg

DRUGS (6)
  1. ISENTRESS [Suspect]
     Indication: HIV INFECTION
     Dosage: 400 MG/BID/PO
     Route: 048
     Dates: start: 20090613, end: 20090616
  2. DULCOLAX [Concomitant]
  3. REMERON [Concomitant]
  4. TRUVADA [Concomitant]
  5. ZOLOFT [Concomitant]
  6. METHADONE HYDROCHLORIDE [Concomitant]

REACTIONS (1)
  - RHABDOMYOLYSIS [None]
